FAERS Safety Report 11218659 (Version 1)
Quarter: 2015Q2

REPORT INFORMATION
  Report Type: Spontaneous
  Country: BR (occurrence: BR)
  Receive Date: 20150625
  Receipt Date: 20150625
  Transmission Date: 20150821
  Serious: Yes (Other)
  Sender: FDA-Public Use
  Company Number: BR-PFIZER INC-2015145896

PATIENT
  Age: 44 Year
  Sex: Male
  Weight: 53 kg

DRUGS (12)
  1. EFFEXOR XR [Suspect]
     Active Substance: VENLAFAXINE HYDROCHLORIDE
     Indication: FEAR
  2. RIVOTRIL [Concomitant]
     Active Substance: CLONAZEPAM
     Indication: INSOMNIA
     Dosage: UNK, AS NEEDED
     Dates: start: 2014
  3. RIVOTRIL [Concomitant]
     Active Substance: CLONAZEPAM
     Indication: AGITATION
  4. EFFEXOR XR [Suspect]
     Active Substance: VENLAFAXINE HYDROCHLORIDE
     Indication: PANIC DISORDER
  5. MESALAZINA [Concomitant]
     Dosage: 800 MG, 2X/DAY
  6. EFFEXOR XR [Suspect]
     Active Substance: VENLAFAXINE HYDROCHLORIDE
     Indication: AGITATION
     Dosage: 2 DF, UNK
     Route: 048
  7. PINAVERIUM BROMIDE [Concomitant]
     Active Substance: PINAVERIUM BROMIDE
     Dosage: 100 MG, 1X/DAY
  8. ZOLPIDEM [Concomitant]
     Active Substance: ZOLPIDEM\ZOLPIDEM TARTRATE
     Dosage: 10 MG, SOS(AS REPORTED)
  9. EFFEXOR XR [Suspect]
     Active Substance: VENLAFAXINE HYDROCHLORIDE
     Indication: ANXIETY
     Dosage: 75 MG, DAILY
     Route: 048
     Dates: start: 201409
  10. EFFEXOR XR [Suspect]
     Active Substance: VENLAFAXINE HYDROCHLORIDE
     Indication: DEPRESSION
  11. ESCITALOPRAM [Concomitant]
     Active Substance: ESCITALOPRAM OXALATE
     Dosage: 20 MG, DAILY
  12. PANTOPRAZOLE [Concomitant]
     Active Substance: PANTOPRAZOLE SODIUM
     Dosage: 40 MG, 1X/DAY

REACTIONS (12)
  - Nausea [Unknown]
  - Gastrooesophageal reflux disease [Unknown]
  - Insomnia [Unknown]
  - Opportunistic infection [Unknown]
  - Gastrointestinal disorder [Unknown]
  - Depression [Unknown]
  - Anxiety [Unknown]
  - Abdominal distension [Unknown]
  - Abnormal faeces [Recovering/Resolving]
  - Social problem [Unknown]
  - Condition aggravated [Unknown]
  - Flatulence [Unknown]
